FAERS Safety Report 11362742 (Version 2)
Quarter: 2015Q3

REPORT INFORMATION
  Report Type: Spontaneous
  Country: US (occurrence: US)
  Receive Date: 20150810
  Receipt Date: 20150911
  Transmission Date: 20151125
  Serious: No
  Sender: FDA-Public Use
  Company Number: US-PFIZER INC-2015261442

PATIENT
  Age: 9 Year
  Sex: Female
  Weight: 33.11 kg

DRUGS (1)
  1. QUILLIVANT XR [Suspect]
     Active Substance: METHYLPHENIDATE HYDROCHLORIDE
     Indication: ATTENTION DEFICIT/HYPERACTIVITY DISORDER
     Dosage: 5 ML, UNK
     Route: 048
     Dates: end: 20150604

REACTIONS (1)
  - Drug ineffective [Unknown]
